FAERS Safety Report 21418683 (Version 1)
Quarter: 2022Q4

REPORT INFORMATION
  Report Type: Spontaneous
  Country: HR (occurrence: HR)
  Receive Date: 20221006
  Receipt Date: 20221006
  Transmission Date: 20230112
  Serious: Yes (Other)
  Sender: FDA-Public Use
  Company Number: None

PATIENT
  Age: 42 Year
  Sex: Female

DRUGS (1)
  1. SERTRALINE [Suspect]
     Active Substance: SERTRALINE HYDROCHLORIDE
     Indication: Product used for unknown indication
     Dosage: 50 MILLIGRAM, QD, NOT KNOWN EXACTLY, PROBABLY MORE
     Route: 048
     Dates: start: 20220820, end: 20220820

REACTIONS (5)
  - Dysarthria [Unknown]
  - Suicide attempt [Unknown]
  - Gait disturbance [Unknown]
  - Somnolence [Unknown]
  - Mydriasis [Unknown]

NARRATIVE: CASE EVENT DATE: 20220820
